FAERS Safety Report 11748043 (Version 2)
Quarter: 2015Q4

REPORT INFORMATION
  Report Type: Spontaneous
  Country: BR (occurrence: BR)
  Receive Date: 20151117
  Receipt Date: 20151230
  Transmission Date: 20160304
  Serious: Yes (Other)
  Sender: FDA-Public Use
  Company Number: BR-ELI_LILLY_AND_COMPANY-BR201511001999

PATIENT
  Sex: Male

DRUGS (3)
  1. HUMULIN N [Suspect]
     Active Substance: INSULIN HUMAN
     Dosage: 22 IU, BEFORE DINNER
     Route: 058
     Dates: start: 1990
  2. HUMULIN N [Suspect]
     Active Substance: INSULIN HUMAN
     Indication: DIABETES MELLITUS
     Dosage: 26 IU, EACH MORNING
     Route: 058
     Dates: start: 1990
  3. GALVUS [Concomitant]
     Active Substance: VILDAGLIPTIN
     Dosage: UNK, EACH MORNING
     Route: 058

REACTIONS (10)
  - Ocular vascular disorder [Not Recovered/Not Resolved]
  - Vision blurred [Unknown]
  - Blindness unilateral [Unknown]
  - Drug dose omission [Unknown]
  - Blood glucose decreased [Not Recovered/Not Resolved]
  - Diabetic retinopathy [Unknown]
  - Blood glucose increased [Not Recovered/Not Resolved]
  - Eye disorder [Not Recovered/Not Resolved]
  - Retinal detachment [Unknown]
  - Visual acuity reduced [Not Recovered/Not Resolved]

NARRATIVE: CASE EVENT DATE: 1993
